FAERS Safety Report 10750671 (Version 1)
Quarter: 2015Q1

REPORT INFORMATION
  Report Type: Spontaneous
  Country: US (occurrence: None)
  Receive Date: 20150126
  Receipt Date: 20150126
  Transmission Date: 20150721
  Serious: Yes (Life-Threatening, Hospitalization, Other)
  Sender: FDA-Public Use
  Company Number: MC201200723

PATIENT
  Age: 56 Year
  Sex: Male
  Weight: 107 kg

DRUGS (9)
  1. VERSED (MIDAZOLAMHYDROCHLORIDE) [Concomitant]
  2. LIDOCAINE. [Concomitant]
     Active Substance: LIDOCAINE
  3. NITROGLYCERIN (GLYCERYL TRINITRATE) [Concomitant]
     Active Substance: NITROGLYCERIN
  4. MORPHINE (MORPHINE HYDROCHLORIDE) [Concomitant]
     Active Substance: MORPHINE
  5. ANGIOMAX [Suspect]
     Active Substance: BIVALIRUDIN
     Indication: PERCUTANEOUS CORONARY INTERVENTION
     Dosage: (16 ML) (NOT OTHERWISE SPECIFIED)
     Route: 040
     Dates: start: 20121211, end: 20121211
  6. TICAGRELOR [Concomitant]
     Active Substance: TICAGRELOR
  7. BRILINTA [Concomitant]
     Active Substance: TICAGRELOR
  8. ASPIRIN (ACETYLSALICYLIC ACID) [Concomitant]
     Active Substance: ASPIRIN
  9. LOPRESSOR [Concomitant]
     Active Substance: METOPROLOL TARTRATE

REACTIONS (2)
  - Thrombosis in device [None]
  - Chest pain [None]

NARRATIVE: CASE EVENT DATE: 20121211
